FAERS Safety Report 6165955-6 (Version None)
Quarter: 2009Q2

REPORT INFORMATION
  Report Type: 
  Country: None (occurrence: None)
  Receive Date: 20090422
  Receipt Date: 20090408
  Transmission Date: 20091009
  Serious: Yes (Other)
  Sender: FDA-Public Use
  Company Number: 233058K09USA

PATIENT
  Age: 54 Year
  Sex: Male
  Weight: 107 kg

DRUGS (3)
  1. REBIF [Suspect]
     Indication: MULTIPLE SCLEROSIS
     Dosage: 44 MCG, 3 IN 1 WEEKS, SUBCUTANEOUS
     Route: 058
     Dates: start: 20051019
  2. ENALAPRIL (ENALAPRIL /00574901/) [Concomitant]
  3. ASPIRIN [Concomitant]

REACTIONS (5)
  - AGEUSIA [None]
  - ANOSMIA [None]
  - DRUG INEFFECTIVE [None]
  - NASAL DISCOMFORT [None]
  - NASOPHARYNGITIS [None]
